FAERS Safety Report 13949269 (Version 1)
Quarter: 2017Q3

REPORT INFORMATION
  Report Type: Spontaneous
  Country: US (occurrence: US)
  Receive Date: 20170908
  Receipt Date: 20170908
  Transmission Date: 20171128
  Serious: No
  Sender: FDA-Public Use
  Company Number: US-JAZZ-2017-US-009886

PATIENT
  Age: 56 Year
  Sex: Male

DRUGS (3)
  1. XYREM [Suspect]
     Active Substance: SODIUM OXYBATE
     Indication: NARCOLEPSY
     Dosage: 2.25G, BID
     Route: 048
     Dates: start: 201706, end: 201707
  2. XYREM [Suspect]
     Active Substance: SODIUM OXYBATE
     Dosage: 4.5G, BID
     Route: 048
     Dates: start: 201707
  3. XYREM [Suspect]
     Active Substance: SODIUM OXYBATE
     Dosage: DOSE ADJUSTMENTS
     Route: 048
     Dates: start: 201707, end: 201707

REACTIONS (8)
  - Stress [Not Recovered/Not Resolved]
  - Intentional product use issue [Unknown]
  - Memory impairment [Not Recovered/Not Resolved]
  - Vision blurred [Unknown]
  - Feeling jittery [Unknown]
  - Thinking abnormal [Not Recovered/Not Resolved]
  - Feeling abnormal [Unknown]
  - Malaise [Unknown]

NARRATIVE: CASE EVENT DATE: 2017
